FAERS Safety Report 21944715 (Version 2)
Quarter: 2023Q1

REPORT INFORMATION
  Report Type: Spontaneous
  Country: US (occurrence: US)
  Receive Date: 20230202
  Receipt Date: 20230210
  Transmission Date: 20230418
  Serious: Yes (Other)
  Sender: FDA-Public Use
  Company Number: US-OTSUKA PHARMACEUTICAL NETHERLANDS B.V.-AUR-002847

PATIENT
  Sex: Female
  Weight: 44.898 kg

DRUGS (1)
  1. LUPKYNIS [Suspect]
     Active Substance: VOCLOSPORIN
     Indication: Lupus nephritis
     Dosage: 23.7 MILLIGRAM, BID
     Route: 048

REACTIONS (7)
  - Weight decreased [Unknown]
  - Deafness [Unknown]
  - Tremor [Unknown]
  - COVID-19 [Unknown]
  - Dysphonia [Unknown]
  - Arthritis [Unknown]
  - Amnesia [Unknown]
